FAERS Safety Report 5582455-2 (Version None)
Quarter: 2007Q4

REPORT INFORMATION
  Report Type: 
  Country: None (occurrence: None)
  Receive Date: 20071130
  Receipt Date: 20070209
  Transmission Date: 20080405
  Serious: Yes (Other)
  Sender: FDA-Public Use
  Company Number: WAES 0702USA01299

PATIENT
  Age: 65 Year
  Sex: Female

DRUGS (3)
  1. FOSAMAX [Suspect]
     Indication: OSTEOPOROSIS
     Dosage: PO
     Route: 048
     Dates: start: 19991204, end: 20060530
  2. FOSAMAX PLUS D [Concomitant]
  3. LIPITOR [Concomitant]

REACTIONS (3)
  - ANXIETY [None]
  - OSTEONECROSIS [None]
  - ULCER [None]
